FAERS Safety Report 15675042 (Version 1)
Quarter: 2018Q4

REPORT INFORMATION
  Report Type: Spontaneous
  Country: US (occurrence: US)
  Receive Date: 20181130
  Receipt Date: 20181130
  Transmission Date: 20190205
  Serious: No
  Sender: FDA-Public Use
  Company Number: US-PFIZER INC-2018480211

PATIENT
  Age: 72 Year
  Sex: Female
  Weight: 145 kg

DRUGS (1)
  1. IBUPROFEN. [Suspect]
     Active Substance: IBUPROFEN
     Indication: PAIN
     Dosage: UNK, 2X/DAY(ONCE IN THE MORNING AND ONCE IN THE EVENING)

REACTIONS (1)
  - Drug ineffective [Unknown]
